FAERS Safety Report 8539394-4 (Version None)
Quarter: 2012Q3

REPORT INFORMATION
  Report Type: 
  Country: None (occurrence: None)
  Receive Date: 20120726
  Receipt Date: 20120718
  Transmission Date: 20120928
  Serious: Yes (Other)
  Sender: FDA-Public Use
  Company Number: GB-JNJFOC-20120708979

PATIENT
  Age: 45 Year
  Sex: Female

DRUGS (1)
  1. RISPERDAL CONSTA [Suspect]
     Indication: BIPOLAR DISORDER
     Route: 030

REACTIONS (3)
  - BREAST DISCHARGE [None]
  - BREAST PAIN [None]
  - BLOOD PROLACTIN INCREASED [None]
